FAERS Safety Report 6516994-4 (Version None)
Quarter: 2009Q4

REPORT INFORMATION
  Report Type: 
  Country: None (occurrence: None)
  Receive Date: 20091223
  Receipt Date: 20091209
  Transmission Date: 20100525
  Serious: Yes (Other)
  Sender: FDA-Public Use
  Company Number: IL-PFIZER INC-2009289609

PATIENT
  Age: 74 Year
  Sex: Female

DRUGS (9)
  1. LYRICA [Suspect]
     Indication: NEURALGIA
     Dosage: 75 MG, 3X/DAY
     Dates: start: 20090501
  2. MICROPIRIN [Concomitant]
  3. COZAAR [Concomitant]
  4. ELATROL [Concomitant]
  5. OPTALGIN [Concomitant]
  6. OMEPRADEX [Concomitant]
  7. BONDORMIN [Concomitant]
  8. CALTRATE [Concomitant]
  9. SENNA LEAF [Concomitant]

REACTIONS (1)
  - HEPATIC ENZYME INCREASED [None]
